FAERS Safety Report 22001593 (Version 2)
Quarter: 2023Q1

REPORT INFORMATION
  Report Type: Spontaneous
  Country: DE (occurrence: DE)
  Receive Date: 20230216
  Receipt Date: 20230302
  Transmission Date: 20230418
  Serious: Yes (Other)
  Sender: FDA-Public Use
  Company Number: DE-MLMSERVICE-20230130-4068952-1

PATIENT
  Age: 7 Year
  Sex: Male

DRUGS (1)
  1. ESTRADIOL [Suspect]
     Active Substance: ESTRADIOL
     Indication: Product used for unknown indication
     Route: 062

REACTIONS (6)
  - Accidental exposure to product by child [Unknown]
  - Epiphyses premature fusion [Recovering/Resolving]
  - Gynaecomastia [Recovering/Resolving]
  - Body height increased [Recovering/Resolving]
  - Precocious puberty [Recovering/Resolving]
  - Exposure via skin contact [Unknown]
